FAERS Safety Report 18117382 (Version 2)
Quarter: 2020Q3

REPORT INFORMATION
  Report Type: Spontaneous
  Country: US (occurrence: US)
  Receive Date: 20200806
  Receipt Date: 20200827
  Transmission Date: 20201103
  Serious: No
  Sender: FDA-Public Use
  Company Number: US-SA-2020SA201400

PATIENT

DRUGS (19)
  1. LIDOCAINE/PRILOCAINE [Concomitant]
     Active Substance: LIDOCAINE\PRILOCAINE
  2. STERILE WATER [Concomitant]
     Active Substance: WATER
  3. FABRAZYME [Suspect]
     Active Substance: AGALSIDASE BETA
     Indication: LIPIDOSIS
     Dosage: 70 MG, QOW
     Route: 041
     Dates: start: 20141208
  4. DOXYCYCLINE MONOHYDRATE [Concomitant]
     Active Substance: DOXYCYCLINE
  5. GABAPENTIN. [Concomitant]
     Active Substance: GABAPENTIN
  6. FABRAZYME [Suspect]
     Active Substance: AGALSIDASE BETA
     Indication: FABRY^S DISEASE
  7. SOLU?MEDROL [Concomitant]
     Active Substance: METHYLPREDNISOLONE SODIUM SUCCINATE
  8. TYLENOL [Concomitant]
     Active Substance: ACETAMINOPHEN
  9. B COMPLEX [AMINOBENZOIC ACID;BIOTIN;CHOLINE BITARTRATE;FOLIC ACID;INOS [Concomitant]
  10. EPINEPHRINE [EPINEPHRINE HYDROCHLORIDE] [Concomitant]
  11. VITAMIN D3 [Concomitant]
     Active Substance: CHOLECALCIFEROL
  12. SODIUM CHLORIDE. [Concomitant]
     Active Substance: SODIUM CHLORIDE
  13. DIPHENHYDRAMINE. [Concomitant]
     Active Substance: DIPHENHYDRAMINE
  14. ZOFRAN [Concomitant]
     Active Substance: ONDANSETRON HYDROCHLORIDE
  15. IBUPROFEN. [Concomitant]
     Active Substance: IBUPROFEN
  16. NORMAL SALINE [Concomitant]
     Active Substance: SODIUM CHLORIDE
  17. ONDANSETRON [Concomitant]
     Active Substance: ONDANSETRON
  18. MAGOX [Concomitant]
  19. MULTIVITAMINS [VITAMINS NOS] [Concomitant]
     Active Substance: VITAMINS

REACTIONS (4)
  - Throat tightness [Unknown]
  - Flushing [Unknown]
  - Nasal congestion [Unknown]
  - Headache [Unknown]
